FAERS Safety Report 8607417 (Version 3)
Quarter: 2014Q1

REPORT INFORMATION
  Report Type: Spontaneous
  Country: US (occurrence: US)
  Receive Date: 20120611
  Receipt Date: 20140110
  Transmission Date: 20141002
  Serious: Yes (Disabling, Other)
  Sender: FDA-Public Use
  Company Number: US-ASTRAZENECA-2012SE35185

PATIENT
  Age: 18107 Day
  Sex: Female

DRUGS (9)
  1. NEXIUM [Suspect]
     Dosage: DAILY
     Route: 048
     Dates: start: 2000
  2. NEXIUM [Suspect]
     Dosage: DAILY
     Route: 048
     Dates: start: 20030304
  3. NEXIUM [Suspect]
     Route: 048
     Dates: start: 20080310
  4. PRILOSEC [Concomitant]
  5. PRAVASTATIN [Concomitant]
  6. ESTRADIOL [Concomitant]
  7. PREDNISONE [Concomitant]
     Dates: start: 20030304
  8. PREMARIN [Concomitant]
     Dates: start: 20030304
  9. LOPRESSOR [Concomitant]
     Dates: start: 20080310

REACTIONS (8)
  - Pulmonary sarcoidosis [Unknown]
  - Uveitis [Unknown]
  - Cutaneous sarcoidosis [Unknown]
  - Osteoporosis [Unknown]
  - Multiple fractures [Unknown]
  - Carpal tunnel syndrome [Unknown]
  - Chronic obstructive pulmonary disease [Unknown]
  - Osteopenia [Unknown]
